FAERS Safety Report 14976517 (Version 1)
Quarter: 2018Q2

REPORT INFORMATION
  Report Type: Spontaneous
  Country: AU (occurrence: AU)
  Receive Date: 20180605
  Receipt Date: 20180605
  Transmission Date: 20180711
  Serious: Yes (Other)
  Sender: FDA-Public Use
  Company Number: AU-GE HEALTHCARE LIFE SCIENCES-2018CSU001503

PATIENT

DRUGS (7)
  1. HEPARIN [Concomitant]
     Active Substance: HEPARIN SODIUM
     Dosage: 8000 UNITS
     Route: 042
     Dates: start: 20180418, end: 20180418
  2. OMNIPAQUE [Suspect]
     Active Substance: IOHEXOL
     Indication: STRESS ECHOCARDIOGRAM ABNORMAL
     Dosage: 150 ML, UNK
     Route: 013
     Dates: start: 20180418, end: 20180418
  3. VERAPAMIL [Concomitant]
     Active Substance: VERAPAMIL HYDROCHLORIDE
     Dosage: 1 MG, UNK
     Route: 013
     Dates: start: 20180418, end: 20180418
  4. GTN [Concomitant]
     Active Substance: NITROGLYCERIN
     Dosage: 400 ?G, UNK
     Route: 013
     Dates: start: 20180418, end: 20180418
  5. TICAGRELOR. [Concomitant]
     Active Substance: TICAGRELOR
     Dosage: 180 MG, UNK
     Route: 048
     Dates: start: 20180418, end: 20180418
  6. MIDAZOLAM [Concomitant]
     Active Substance: MIDAZOLAM HYDROCHLORIDE
     Dosage: 4 MG, UNK
     Route: 042
     Dates: start: 20180418, end: 20180418
  7. FENTANYL. [Concomitant]
     Active Substance: FENTANYL
     Dosage: 75 ?G, UNK
     Route: 042
     Dates: start: 20180418, end: 20180418

REACTIONS (4)
  - Oral disorder [Recovering/Resolving]
  - Hypoaesthesia oral [Recovering/Resolving]
  - Rash erythematous [Recovering/Resolving]
  - Lip swelling [Recovering/Resolving]

NARRATIVE: CASE EVENT DATE: 20180418
